FAERS Safety Report 7537983 (Version 4)
Quarter: 2013Q1

REPORT INFORMATION
  Report Type: Report from Study
  Country: JP (occurrence: JP)
  Receive Date: 20100812
  Receipt Date: 20130102
  Transmission Date: 20140127
  Serious: Yes (Hospitalization)
  Sender: FDA-Public Use
  Company Number: JP-BRISTOL-MYERS SQUIBB COMPANY-15234198

PATIENT
  Age: 61 Year
  Sex: Female
  Weight: 68 kg

DRUGS (4)
  1. BARACLUDE [Suspect]
     Indication: CHRONIC HEPATITIS B
     Dosage: 26MAR07-06JAN08 0.5MG ONCE IN EVERY OTHER DAY?07JAN-15JUN08 0.5MG 2/WK?16JUN08 0.5MG/WK
     Route: 048
     Dates: start: 20070326
  2. NORVASC [Concomitant]
     Indication: HYPERTENSION
     Dosage: FORMULATION:TABS
     Route: 048
     Dates: end: 20100323
  3. LASIX [Concomitant]
     Indication: HYPERTENSION
     Dosage: FORMULATION:TABS
     Route: 048
     Dates: end: 20100323
  4. ALDACTONE-A [Concomitant]
     Indication: HYPERTENSION
     Dosage: FORMULATION:TABS
     Route: 048
     Dates: end: 20100323

REACTIONS (4)
  - Hepatocellular carcinoma [Recovered/Resolved]
  - Bradykinesia [Recovering/Resolving]
  - Hyperammonaemia [Recovering/Resolving]
  - Epistaxis [Recovering/Resolving]
